FAERS Safety Report 4750005-6 (Version None)
Quarter: 2005Q3

REPORT INFORMATION
  Report Type: 
  Country: None (occurrence: None)
  Receive Date: 20050822
  Receipt Date: 20050512
  Transmission Date: 20060218
  Serious: Yes (Hospitalization)
  Sender: FDA-Public Use
  Company Number: US-MERCK-0505USA01677

PATIENT
  Age: 35 Year
  Sex: Female
  Weight: 130 kg

DRUGS (10)
  1. VIOXX [Suspect]
     Indication: ARTHRITIS
     Route: 048
     Dates: start: 20000918, end: 20030701
  2. VIOXX [Suspect]
     Indication: ARTHRALGIA
     Route: 048
     Dates: start: 20000918, end: 20030701
  3. ADVIL [Concomitant]
     Indication: ARTHRITIS
     Route: 048
     Dates: start: 19930101
  4. ASPIRIN [Concomitant]
     Indication: ARTHRITIS
     Route: 048
     Dates: start: 19930101, end: 20001104
  5. ASPIRIN [Concomitant]
     Route: 048
     Dates: start: 20001105
  6. VICODIN [Concomitant]
     Indication: ARTHRITIS
     Route: 048
     Dates: start: 19930101
  7. CATAPRES [Concomitant]
     Indication: HYPERTENSION
     Route: 048
     Dates: start: 19991101, end: 20010101
  8. ESTRADIOL [Concomitant]
     Indication: HORMONE REPLACEMENT THERAPY
     Route: 048
     Dates: start: 20000601, end: 20030101
  9. XANAX [Concomitant]
     Indication: ANXIETY
     Route: 048
     Dates: start: 19870101
  10. INTEGRILIN [Suspect]
     Route: 048
     Dates: start: 20001101

REACTIONS (9)
  - CHEST PAIN [None]
  - CORONARY ARTERY DISEASE [None]
  - DEPRESSION [None]
  - DRUG HYPERSENSITIVITY [None]
  - GASTRIC DISORDER [None]
  - HEART RATE IRREGULAR [None]
  - HERPES VIRUS INFECTION [None]
  - LIMB INJURY [None]
  - MYOCARDIAL INFARCTION [None]
